FAERS Safety Report 26136851 (Version 1)
Quarter: 2025Q4

REPORT INFORMATION
  Report Type: Spontaneous
  Country: US (occurrence: None)
  Receive Date: 20251209
  Receipt Date: 20251209
  Transmission Date: 20260117
  Serious: Yes (Hospitalization)
  Sender: FDA-CTU
  Company Number: None

PATIENT
  Age: 89 Year
  Sex: Male
  Weight: 67 kg

DRUGS (2)
  1. EMPAGLIFLOZIN [Suspect]
     Active Substance: EMPAGLIFLOZIN
     Indication: Diabetes mellitus
     Dosage: 12.5 MG AM PO
     Route: 048
     Dates: start: 20250313, end: 20250522
  2. HYDROCHLOROTHIAZIDE [Suspect]
     Active Substance: HYDROCHLOROTHIAZIDE
     Indication: Hypertension
     Dosage: 12.5 MG AM PO
     Route: 048
     Dates: start: 20240705, end: 20250522

REACTIONS (4)
  - Blood creatinine increased [None]
  - Dehydration [None]
  - Tachycardia [None]
  - Urinary tract infection [None]

NARRATIVE: CASE EVENT DATE: 20250522
